FAERS Safety Report 23353772 (Version 2)
Quarter: 2024Q2

REPORT INFORMATION
  Report Type: Spontaneous
  Country: CZ (occurrence: CZ)
  Receive Date: 20240101
  Receipt Date: 20240520
  Transmission Date: 20240715
  Serious: Yes (Life-Threatening, Hospitalization, Other)
  Sender: FDA-Public Use
  Company Number: CZ-BAUSCH-BL-2023-018808

PATIENT
  Age: 24 Year
  Sex: Female

DRUGS (9)
  1. ANAGRELIDE [Suspect]
     Active Substance: ANAGRELIDE
     Indication: Deep vein thrombosis
     Dosage: UNK
     Route: 065
  2. ANAGRELIDE [Suspect]
     Active Substance: ANAGRELIDE
     Indication: Full blood count abnormal
  3. ASPIRIN [Suspect]
     Active Substance: ASPIRIN
     Indication: Deep vein thrombosis
     Dosage: 100 MILLIGRAM, QD
     Route: 065
  4. ASPIRIN [Suspect]
     Active Substance: ASPIRIN
     Indication: Product used for unknown indication
     Dosage: UNK
     Route: 065
  5. ROPEGINTERFERON ALFA-2B [Suspect]
     Active Substance: ROPEGINTERFERON ALFA-2B
     Indication: Deep vein thrombosis
     Dosage: 250 MICROGRAM, 2/WEEK
     Route: 065
     Dates: start: 202206, end: 2023
  6. COUMARIN [Suspect]
     Active Substance: COUMARIN
     Indication: Deep vein thrombosis
     Dosage: UNK
     Route: 065
  7. PEGINTERFERON ALFA-2A [Suspect]
     Active Substance: PEGINTERFERON ALFA-2A
     Indication: Deep vein thrombosis
     Dosage: 180 MICROGRAM, 1/WEEK
     Route: 065
     Dates: start: 2021, end: 202206
  8. PEGINTERFERON ALFA-2A [Suspect]
     Active Substance: PEGINTERFERON ALFA-2A
     Indication: Polycythaemia vera
  9. UNSPECIFIED INGREDIENT [Suspect]
     Active Substance: UNSPECIFIED INGREDIENT
     Indication: Deep vein thrombosis
     Dosage: 0.6 MILLILITER, Q12H
     Route: 058
     Dates: start: 202210

REACTIONS (4)
  - Musculoskeletal toxicity [Unknown]
  - Normal newborn [Unknown]
  - Maternal exposure during pregnancy [Recovered/Resolved]
  - Off label use [Recovered/Resolved]
